FAERS Safety Report 23576013 (Version 1)
Quarter: 2024Q1

REPORT INFORMATION
  Report Type: Spontaneous
  Country: US (occurrence: US)
  Receive Date: 20240228
  Receipt Date: 20240228
  Transmission Date: 20240410
  Serious: No
  Sender: FDA-Public Use
  Company Number: US-BAYER-2024A027923

PATIENT
  Age: 84 Year
  Sex: Male

DRUGS (3)
  1. CLARITIN [Suspect]
     Active Substance: LORATADINE
     Indication: Sneezing
     Dosage: UNK
     Route: 048
     Dates: start: 20240220, end: 20240220
  2. CLARITIN [Suspect]
     Active Substance: LORATADINE
     Indication: Rhinorrhoea
  3. METFORMIN [Concomitant]
     Active Substance: METFORMIN HYDROCHLORIDE
     Dosage: UNK

REACTIONS (3)
  - Epistaxis [Recovering/Resolving]
  - Facial pain [Recovering/Resolving]
  - Headache [Recovering/Resolving]

NARRATIVE: CASE EVENT DATE: 20240220
